FAERS Safety Report 11131347 (Version 4)
Quarter: 2015Q2

REPORT INFORMATION
  Report Type: Spontaneous
  Country: JP (occurrence: JP)
  Receive Date: 20150522
  Receipt Date: 20150603
  Transmission Date: 20150821
  Serious: Yes (Death)
  Sender: FDA-Public Use
  Company Number: JP-JNJFOC-20150510827

PATIENT
  Age: 89 Year
  Sex: Male
  Weight: 50 kg

DRUGS (7)
  1. XARELTO [Suspect]
     Active Substance: RIVAROXABAN
     Indication: ATRIAL FIBRILLATION
     Route: 048
     Dates: start: 20150327, end: 20150402
  2. PIRFENIDONE [Concomitant]
     Active Substance: PIRFENIDONE
     Route: 048
     Dates: start: 20150331, end: 20150402
  3. MERISLON [Concomitant]
     Active Substance: BETAHISTINE MESILATE
     Route: 048
     Dates: start: 20150302, end: 20150304
  4. PIRFENIDONE [Concomitant]
     Active Substance: PIRFENIDONE
     Route: 048
     Dates: start: 20110824, end: 20150302
  5. PIRFENIDONE [Concomitant]
     Active Substance: PIRFENIDONE
     Route: 048
     Dates: start: 20150303, end: 20150330
  6. DEXCHLORPHENIRAMINE MALEATE. [Concomitant]
     Active Substance: DEXCHLORPHENIRAMINE MALEATE
     Route: 048
     Dates: start: 20140819, end: 20150402
  7. XARELTO [Suspect]
     Active Substance: RIVAROXABAN
     Indication: CEREBROVASCULAR ACCIDENT PROPHYLAXIS
     Route: 048
     Dates: start: 20150327, end: 20150402

REACTIONS (2)
  - Interstitial lung disease [Fatal]
  - Respiratory failure [Fatal]

NARRATIVE: CASE EVENT DATE: 20150402
